FAERS Safety Report 6343192-X (Version None)
Quarter: 2009Q3

REPORT INFORMATION
  Report Type: 
  Country: None (occurrence: None)
  Receive Date: 20090908
  Receipt Date: 20090828
  Transmission Date: 20100115
  Serious: Yes (Other)
  Sender: FDA-Public Use
  Company Number: US-NOVOPROD-291095

PATIENT
  Sex: Female

DRUGS (1)
  1. ACTIVELLA 0.5/0.1 MG [Suspect]
     Indication: HORMONE THERAPY
     Dosage: UNK
     Route: 048

REACTIONS (3)
  - AMNESIA [None]
  - DEMENTIA [None]
  - VISUAL IMPAIRMENT [None]
